FAERS Safety Report 19596942 (Version 3)
Quarter: 2023Q2

REPORT INFORMATION
  Report Type: Report from Study
  Country: US (occurrence: US)
  Receive Date: 20210722
  Receipt Date: 20230606
  Transmission Date: 20230722
  Serious: Yes (Death, Other)
  Sender: FDA-Public Use
  Company Number: US-TAKEDA-CA202011343

PATIENT
  Age: 39 Year
  Sex: Female
  Weight: 54 kg

DRUGS (13)
  1. TEDUGLUTIDE [Suspect]
     Active Substance: TEDUGLUTIDE
     Indication: Short-bowel syndrome
     Dosage: 2.49 MILLIGRAM, QD
     Route: 042
     Dates: start: 20160705, end: 20160804
  2. TEDUGLUTIDE [Suspect]
     Active Substance: TEDUGLUTIDE
     Indication: Short-bowel syndrome
     Dosage: 2.49 MILLIGRAM, QD
     Route: 042
     Dates: start: 20160705, end: 20160804
  3. TEDUGLUTIDE [Suspect]
     Active Substance: TEDUGLUTIDE
     Indication: Short-bowel syndrome
     Dosage: 2.49 MILLIGRAM, QD
     Route: 042
     Dates: start: 20160705, end: 20160804
  4. TEDUGLUTIDE [Suspect]
     Active Substance: TEDUGLUTIDE
     Indication: Short-bowel syndrome
     Dosage: 2.49 MILLIGRAM, QD
     Route: 042
     Dates: start: 20160705, end: 20160804
  5. TEDUGLUTIDE [Suspect]
     Active Substance: TEDUGLUTIDE
     Dosage: 0.228 MILLIGRAM
     Route: 042
     Dates: start: 20160808, end: 20170627
  6. TEDUGLUTIDE [Suspect]
     Active Substance: TEDUGLUTIDE
     Dosage: 0.228 MILLIGRAM
     Route: 042
     Dates: start: 20160808, end: 20170627
  7. TEDUGLUTIDE [Suspect]
     Active Substance: TEDUGLUTIDE
     Dosage: 0.228 MILLIGRAM
     Route: 042
     Dates: start: 20160808, end: 20170627
  8. TEDUGLUTIDE [Suspect]
     Active Substance: TEDUGLUTIDE
     Dosage: 0.228 MILLIGRAM
     Route: 042
     Dates: start: 20160808, end: 20170627
  9. AZATHIOPRINE [Concomitant]
     Active Substance: AZATHIOPRINE
     Indication: Crohn^s disease
     Dosage: UNK
     Route: 065
  10. BACTROBAN [Concomitant]
     Active Substance: MUPIROCIN\MUPIROCIN CALCIUM
     Indication: Skin disorder
     Dosage: 1 UNK, BID
     Route: 045
     Dates: start: 20180703
  11. CUTIVATE [Concomitant]
     Active Substance: FLUTICASONE PROPIONATE
     Indication: Skin disorder
     Dosage: 1 UNK, BID
     Route: 050
     Dates: start: 20180703
  12. ELIDEL [Concomitant]
     Active Substance: PIMECROLIMUS
     Indication: Skin disorder
     Dosage: 1 UNK, BID
     Route: 048
     Dates: start: 20180703
  13. KLOR-CON [Concomitant]
     Active Substance: POTASSIUM CHLORIDE
     Indication: Electrolyte substitution therapy
     Dosage: 20 UNITS, QD
     Route: 048
     Dates: start: 20171103, end: 20180515

REACTIONS (1)
  - Death [Fatal]

NARRATIVE: CASE EVENT DATE: 20190628
